FAERS Safety Report 6809864-5 (Version None)
Quarter: 2010Q2

REPORT INFORMATION
  Report Type: 
  Country: None (occurrence: None)
  Receive Date: 20100630
  Receipt Date: 20100625
  Transmission Date: 20101027
  Serious: Yes (Hospitalization)
  Sender: FDA-Public Use
  Company Number: BE-B.I. PHARMACEUTICALS,INC./RIDGEFIELD-2010-BL-00071BL

PATIENT
  Sex: Male
  Weight: 85 kg

DRUGS (12)
  1. SPIRIVA [Suspect]
     Indication: CHRONIC OBSTRUCTIVE PULMONARY DISEASE
     Dosage: 18 MCG
     Route: 055
  2. SPIRIVA [Suspect]
     Dosage: 54 MCG
     Route: 055
  3. SPIRIVA [Suspect]
     Dosage: 18 MCG
     Route: 055
     Dates: start: 20060101
  4. SYMBICORT [Suspect]
     Indication: CHRONIC OBSTRUCTIVE PULMONARY DISEASE
     Dosage: AS PERSCRIBED
  5. SYMBICORT [Suspect]
     Dosage: HIGHER DOSE THAN PRESCRIBED
  6. SYMBICORT [Suspect]
  7. GLURENORM [Concomitant]
     Indication: DIABETES MELLITUS
     Dosage: 3 ANZ
     Route: 048
  8. COVERSYL PLUS [Concomitant]
     Indication: HYPERTENSION
     Dosage: 1 ANZ
     Route: 048
  9. CLEXANE 40 [Concomitant]
     Indication: ATRIAL FIBRILLATION
     Dosage: 1 ANZ
     Route: 058
  10. CORDARONE 200 [Concomitant]
     Indication: ATRIAL FIBRILLATION
     Dosage: 1 ANZ
     Route: 048
  11. LASIX [Concomitant]
     Indication: CARDIAC FAILURE
     Dosage: 1 ANZ
     Route: 048
  12. LASIX [Concomitant]
     Indication: HYPERTENSION

REACTIONS (4)
  - CUSHINGOID [None]
  - DRUG INEFFECTIVE [None]
  - GASTROINTESTINAL HAEMORRHAGE [None]
  - OVERDOSE [None]
